FAERS Safety Report 11916105 (Version 2)
Quarter: 2016Q1

REPORT INFORMATION
  Report Type: Spontaneous
  Country: SI (occurrence: SI)
  Receive Date: 20160114
  Receipt Date: 20160120
  Transmission Date: 20160526
  Serious: No
  Sender: FDA-Public Use
  Company Number: SI-SA-2016SA006040

PATIENT
  Age: 75 Year
  Sex: Male

DRUGS (7)
  1. DIOVAN [Concomitant]
     Active Substance: VALSARTAN
  2. PLAVIX [Concomitant]
     Active Substance: CLOPIDOGREL BISULFATE
  3. CONCOR [Concomitant]
     Active Substance: BISOPROLOL FUMARATE
  4. LACIPIL [Concomitant]
     Active Substance: LACIDIPINE
  5. MULTAQ [Suspect]
     Active Substance: DRONEDARONE
     Indication: ATRIAL FIBRILLATION
     Route: 048
     Dates: start: 2012
  6. ASENTRA [Concomitant]
     Active Substance: SERTRALINE HYDROCHLORIDE
  7. SINVACOR [Concomitant]
     Active Substance: SIMVASTATIN

REACTIONS (1)
  - Blood creatinine increased [Not Recovered/Not Resolved]

NARRATIVE: CASE EVENT DATE: 201512
